FAERS Safety Report 11007602 (Version 4)
Quarter: 2015Q2

REPORT INFORMATION
  Report Type: Report from Study
  Country: CZ (occurrence: CZ)
  Receive Date: 20150409
  Receipt Date: 20150501
  Transmission Date: 20150821
  Serious: Yes (Hospitalization)
  Sender: FDA-Public Use
  Company Number: CZ-AMGEN-CZECT2015034005

PATIENT
  Age: 69 Year
  Sex: Female
  Weight: 72 kg

DRUGS (13)
  1. CIPRINOL                           /00697202/ [Concomitant]
     Dosage: 5100 MG, UNK
     Route: 048
     Dates: start: 20150116, end: 20150123
  2. PULMICORT TURBUHALER [Concomitant]
     Active Substance: BUDESONIDE
     Dosage: 200 MG, UNK
     Route: 055
     Dates: start: 20030315
  3. ROVAMYCIN [Concomitant]
     Active Substance: SPIRAMYCIN
     Dosage: 3 UNK, UNK
     Route: 048
     Dates: start: 20150316
  4. BERODUAL [Concomitant]
     Active Substance: FENOTEROL HYDROBROMIDE\IPRATROPIUM BROMIDE
     Dosage: 0.02 MG, UNK
     Route: 055
     Dates: start: 20081115
  5. DALACIN C                          /00166002/ [Concomitant]
     Dosage: 300 MG, UNK
     Route: 048
     Dates: start: 20150405
  6. KETONAL                            /00321701/ [Concomitant]
     Active Substance: KETOPROFEN
     Dosage: 1 UNK, UNK
     Route: 042
     Dates: start: 20150320, end: 20150320
  7. HYDROCORTISON                      /00028602/ [Concomitant]
     Dosage: 200 MG, UNK
     Route: 042
     Dates: start: 20150320, end: 20150320
  8. EUPHYLLIN                          /00012201/ [Concomitant]
     Dosage: 200 MG, UNK
     Route: 048
     Dates: start: 200302
  9. PARACETAMOL [Concomitant]
     Active Substance: ACETAMINOPHEN
     Dosage: 500 MG, UNK
     Route: 048
     Dates: start: 20150313
  10. CALCIUM [Concomitant]
     Active Substance: CALCIUM
     Dosage: 500 MG, UNK
     Route: 048
     Dates: start: 20110428
  11. VITAMIN D                          /00107901/ [Concomitant]
     Active Substance: ERGOCALCIFEROL
     Dosage: 200 IU, UNK
     Route: 048
     Dates: start: 20110428
  12. DENOSUMAB [Suspect]
     Active Substance: DENOSUMAB
     Indication: BREAST CANCER
     Dosage: 120 MG, UNK
     Route: 058
     Dates: start: 20110428
  13. AMLODIPIN                          /00972401/ [Concomitant]
     Active Substance: AMLODIPINE BESYLATE
     Dosage: 5 MG, UNK
     Route: 048
     Dates: start: 200101

REACTIONS (1)
  - Osteonecrosis of jaw [Recovered/Resolved]

NARRATIVE: CASE EVENT DATE: 20150321
